FAERS Safety Report 12188191 (Version 1)
Quarter: 2016Q1

REPORT INFORMATION
  Report Type: Spontaneous
  Country: NL (occurrence: NL)
  Receive Date: 20160317
  Receipt Date: 20160317
  Transmission Date: 20160526
  Serious: Yes (Hospitalization)
  Sender: FDA-Public Use
  Company Number: NL-ASTRAZENECA-2016SE28022

PATIENT
  Age: 18886 Day
  Sex: Female

DRUGS (2)
  1. ZOLADEX [Suspect]
     Active Substance: GOSERELIN ACETATE
     Indication: BREAST CANCER FEMALE
     Route: 058
     Dates: start: 20130312
  2. XGEVA [Concomitant]
     Active Substance: DENOSUMAB

REACTIONS (1)
  - Wound [Unknown]

NARRATIVE: CASE EVENT DATE: 20160305
